FAERS Safety Report 7053368-4 (Version None)
Quarter: 2010Q4

REPORT INFORMATION
  Report Type: 
  Country: None (occurrence: None)
  Receive Date: 20101020
  Receipt Date: 20100816
  Transmission Date: 20110411
  Serious: No
  Sender: FDA-Public Use
  Company Number: US-MYLANLABS-2010S1012677

PATIENT
  Age: 27 Year
  Sex: Female

DRUGS (3)
  1. BUPROPION HYDROCHLORIDE [Suspect]
     Indication: ANORGASMIA
     Route: 048
     Dates: start: 20100620
  2. LEXAPRO [Concomitant]
     Indication: ANXIETY DISORDER
  3. XANAX [Concomitant]
     Indication: ANXIETY DISORDER

REACTIONS (2)
  - ANORGASMIA [None]
  - DRUG INEFFECTIVE FOR UNAPPROVED INDICATION [None]
